FAERS Safety Report 13204103 (Version 1)
Quarter: 2017Q1

REPORT INFORMATION
  Report Type: Spontaneous
  Country: TR (occurrence: TR)
  Receive Date: 20170209
  Receipt Date: 20170209
  Transmission Date: 20170428
  Serious: Yes (Hospitalization)
  Sender: FDA-Public Use
  Company Number: TR-TEVA-738911ISR

PATIENT
  Age: 14 Year
  Sex: Male

DRUGS (1)
  1. ARIPIPRAZOLE. [Suspect]
     Active Substance: ARIPIPRAZOLE
     Indication: CONDUCT DISORDER
     Dosage: 5 MILLIGRAM DAILY;
     Route: 065

REACTIONS (1)
  - Raynaud^s phenomenon [Recovered/Resolved]
